FAERS Safety Report 15638326 (Version 1)
Quarter: 2018Q4

REPORT INFORMATION
  Report Type: Spontaneous
  Country: US (occurrence: US)
  Receive Date: 20181120
  Receipt Date: 20181120
  Transmission Date: 20190205
  Serious: No
  Sender: FDA-Public Use
  Company Number: US-JNJFOC-20180835058

PATIENT
  Age: 86 Year
  Sex: Male

DRUGS (12)
  1. B6 [Concomitant]
     Active Substance: PYRIDOXINE HYDROCHLORIDE
  2. BISOPROLOL [Concomitant]
     Active Substance: BISOPROLOL
  3. BENAZEPRIL [Concomitant]
     Active Substance: BENAZEPRIL HYDROCHLORIDE
  4. IMBRUVICA [Suspect]
     Active Substance: IBRUTINIB
     Indication: CHRONIC LYMPHOCYTIC LEUKAEMIA
     Route: 065
     Dates: start: 20180621
  5. UBIDECARENONE [Concomitant]
     Active Substance: UBIDECARENONE
  6. ZANTAC [Concomitant]
     Active Substance: RANITIDINE HYDROCHLORIDE
  7. CYANOCOBALAMIN. [Concomitant]
     Active Substance: CYANOCOBALAMIN
  8. VITAMIN C [Concomitant]
     Active Substance: ASCORBIC ACID
  9. BIFIDOBACTERIUM LACTIS [Concomitant]
     Active Substance: BIFIDOBACTERIUM ANIMALIS LACTIS
  10. LEVEMIR [Concomitant]
     Active Substance: INSULIN DETEMIR
  11. IRON [Concomitant]
     Active Substance: IRON
  12. ELIQUIS [Concomitant]
     Active Substance: APIXABAN

REACTIONS (4)
  - Skin ulcer [Unknown]
  - Incorrect dose administered [Unknown]
  - Off label use [Unknown]
  - Rash macular [Unknown]

NARRATIVE: CASE EVENT DATE: 20180621
